FAERS Safety Report 8601358-X (Version None)
Quarter: 2012Q3

REPORT INFORMATION
  Report Type: 
  Country: None (occurrence: None)
  Receive Date: 20120806
  Receipt Date: 20120806
  Transmission Date: 20120928
  Serious: Yes (Life-Threatening, Hospitalization, Disabling)
  Sender: FDA-Public Use
  Company Number: None

PATIENT
  Age: 6 Year
  Sex: Female
  Weight: 21.3191 kg

DRUGS (2)
  1. CHILDREN'S ADVIL [Suspect]
     Indication: PAIN
     Dosage: ONE ONCE
     Dates: start: 20111101, end: 20111103
  2. CHILDREN'S ADVIL [Suspect]
     Indication: PYREXIA
     Dosage: ONE ONCE
     Dates: start: 20111101, end: 20111103

REACTIONS (2)
  - TOXIC EPIDERMAL NECROLYSIS [None]
  - CORNEAL SCAR [None]
